FAERS Safety Report 5945923-7 (Version None)
Quarter: 2008Q4

REPORT INFORMATION
  Report Type: 
  Country: None (occurrence: None)
  Receive Date: 20081106
  Receipt Date: 20081022
  Transmission Date: 20090506
  Serious: Yes (Other)
  Sender: FDA-Public Use
  Company Number: 8033339

PATIENT
  Age: 66 Year
  Sex: Male

DRUGS (1)
  1. XYZAL [Suspect]
     Indication: SEASONAL ALLERGY
     Dosage: 10 MG 1/D PO
     Route: 048
     Dates: start: 20080531, end: 20080602

REACTIONS (5)
  - ATRIAL FLUTTER [None]
  - BLOOD BILIRUBIN INCREASED [None]
  - BLOOD CHOLESTEROL INCREASED [None]
  - HEART RATE INCREASED [None]
  - PALPITATIONS [None]
